FAERS Safety Report 4890632-9 (Version None)
Quarter: 2006Q2

REPORT INFORMATION
  Report Type: 
  Country: None (occurrence: None)
  Receive Date: 20060120
  Receipt Date: 20060102
  Transmission Date: 20061013
  Serious: Yes (Disabling, Congenital Anomaly)
  Sender: FDA-Public Use
  Company Number: UKO06000002

PATIENT
  Age: 19 Year
  Sex: Female

DRUGS (1)
  1. VAPORUB [Suspect]
     Route: 064
     Dates: start: 19841115, end: 19850215

REACTIONS (6)
  - CONGENITAL JAW MALFORMATION [None]
  - DRUG EXPOSURE DURING PREGNANCY [None]
  - EAR MALFORMATION [None]
  - LIMB HYPOPLASIA CONGENITAL [None]
  - MICROTIA [None]
  - OCULOAURICULOVERTEBRAL DYSPLASIA [None]
